FAERS Safety Report 4977532-0 (Version None)
Quarter: 2006Q2

REPORT INFORMATION
  Report Type: 
  Country: None (occurrence: None)
  Receive Date: 20060414
  Receipt Date: 20060331
  Transmission Date: 20061013
  Serious: Yes (Hospitalization)
  Sender: FDA-Public Use
  Company Number: THYM-10929

PATIENT
  Age: 65 Year
  Sex: Male

DRUGS (6)
  1. THYMOGLOBULIN [Suspect]
     Indication: RENAL TRANSPLANT
  2. THYMOGLOBULIN [Suspect]
  3. THYMOGLOBULIN [Suspect]
  4. POLARMAINE [Concomitant]
  5. HYDROCORTISONE HEMISUCCINATE [Concomitant]
  6. SOLUMEDRONE [Concomitant]

REACTIONS (7)
  - CHILLS [None]
  - FISTULA [None]
  - MYALGIA [None]
  - OXYGEN SATURATION DECREASED [None]
  - PULMONARY OEDEMA [None]
  - PYREXIA [None]
  - THERAPEUTIC PRODUCT CONTAMINATION [None]
